FAERS Safety Report 4754527-3 (Version None)
Quarter: 2005Q3

REPORT INFORMATION
  Report Type: 
  Country: None (occurrence: None)
  Receive Date: 20050825
  Receipt Date: 20050825
  Transmission Date: 20060218
  Serious: Yes (Death)
  Sender: FDA-Public Use
  Company Number: None

PATIENT
  Age: 25 Month
  Sex: Female
  Weight: 10 kg

DRUGS (3)
  1. THIOTEPA [Suspect]
     Indication: MEDULLOBLASTOMA
     Dosage: 10 MG/KG    DAILY X 3   IV
     Route: 042
     Dates: start: 20050724, end: 20050726
  2. CARBOPLATIN [Suspect]
     Dosage: 16.7 MG/KG   DAILY X 3  IV
     Route: 042
     Dates: start: 20050721, end: 20050723
  3. ETOPOSIDE [Concomitant]

REACTIONS (4)
  - BONE MARROW TRANSPLANT [None]
  - COMPLICATIONS OF BONE MARROW TRANSPLANT [None]
  - RESPIRATORY FAILURE [None]
  - VENOOCCLUSIVE DISEASE [None]
